FAERS Safety Report 9200567 (Version 1)
Quarter: 2013Q1

REPORT INFORMATION
  Report Type: Report from Study
  Country: US (occurrence: US)
  Receive Date: 20130329
  Receipt Date: 20130329
  Transmission Date: 20140127
  Serious: Yes (Death)
  Sender: FDA-Public Use
  Company Number: US-PFIZER INC-2013098024

PATIENT
  Age: 66 Year
  Sex: Female

DRUGS (15)
  1. REVATIO [Suspect]
     Indication: PULMONARY ARTERIAL HYPERTENSION
     Dosage: 60 MG, DAILY
     Dates: start: 20081209
  2. TRACLEER [Suspect]
     Indication: PULMONARY ARTERIAL HYPERTENSION
     Dosage: 250 MG, DAILY
     Dates: start: 20070509
  3. VENTAVIS [Suspect]
     Indication: PULMONARY ARTERIAL HYPERTENSION
     Dosage: 0.16 MG, DAILY
     Dates: start: 20080807
  4. ADVAIR [Concomitant]
     Indication: CHRONIC OBSTRUCTIVE PULMONARY DISEASE
     Dosage: 250-50, INHALATION
     Route: 055
  5. SINGULAIR [Concomitant]
     Indication: CHRONIC OBSTRUCTIVE PULMONARY DISEASE
     Dosage: 10 MG, UNK
     Route: 048
  6. SALBUTAMOL [Concomitant]
     Indication: CHRONIC OBSTRUCTIVE PULMONARY DISEASE
     Dosage: 2 PUFFS (90MG, 2 IN 1 D), INHALATION
     Route: 055
  7. COUMADIN [Concomitant]
     Indication: PULMONARY ARTERIAL HYPERTENSION
     Dosage: 5 MG, UNK
     Route: 048
  8. POTASSIUM [Concomitant]
     Indication: OEDEMA
     Dosage: 10 MEQ, UNK
     Route: 048
  9. BUMEX [Concomitant]
     Indication: OEDEMA
     Dosage: 2 MG, UNK
     Route: 048
  10. ZEBETA [Concomitant]
     Indication: HYPERTENSION
  11. TESSALON PERLE [Concomitant]
     Indication: CHRONIC OBSTRUCTIVE PULMONARY DISEASE
     Dosage: 200 MG, UNK
     Route: 048
  12. MUCINEX [Concomitant]
     Indication: CHRONIC OBSTRUCTIVE PULMONARY DISEASE
     Dosage: 600 MG, UNK
     Route: 048
     Dates: start: 20120720
  13. GABAPENTIN [Concomitant]
     Indication: FIBROMYALGIA
     Dosage: 600 MG, UNK
     Route: 048
  14. FLEXERIL [Concomitant]
     Indication: FIBROMYALGIA
     Dosage: 10 MG, UNK
     Route: 048
  15. SYNTHROID [Concomitant]
     Indication: HYPOTHYROIDISM
     Dosage: 150 UG, UNK
     Route: 048

REACTIONS (2)
  - Pulseless electrical activity [Fatal]
  - Cardiac arrest [Fatal]
